FAERS Safety Report 4939770-2 (Version None)
Quarter: 2006Q1

REPORT INFORMATION
  Report Type: 
  Country: None (occurrence: None)
  Receive Date: 20060307
  Receipt Date: 20050207
  Transmission Date: 20060701
  Serious: Yes (Hospitalization, Other)
  Sender: FDA-Public Use
  Company Number: 2005013926

PATIENT
  Age: 30 Year
  Sex: Female

DRUGS (6)
  1. LYRICA [Suspect]
     Indication: ILL-DEFINED DISORDER
     Dosage: 1800 MG (1800 MG, 1 IN 1 D), ORAL
     Route: 048
     Dates: start: 20041215
  2. ALPRAZOLAM [Suspect]
     Indication: ILL-DEFINED DISORDER
     Dosage: ONCE (18 MG), ORAL
     Route: 048
  3. LAMICTAL [Suspect]
     Indication: ILL-DEFINED DISORDER
     Dosage: ONCE (900 MG), ORAL
     Route: 048
  4. CARISOPRODOL [Suspect]
     Indication: ILL-DEFINED DISORDER
     Dosage: ONCE (1050 MG), ORAL
     Route: 048
  5. TRUXAL (CHLORPROTHIXENE HYDROCHLORIDE) [Suspect]
     Indication: ILL-DEFINED DISORDER
     Dosage: ONCE (150 MG), ORAL
     Route: 048
  6. IMOVANE (ZOPICLONE) [Suspect]
     Indication: ILL-DEFINED DISORDER
     Dosage: ONCE (45 MG), ORAL
     Route: 048

REACTIONS (14)
  - BALANCE DISORDER [None]
  - COMA [None]
  - DIPLOPIA [None]
  - EUPHORIC MOOD [None]
  - FEELING ABNORMAL [None]
  - FEELING DRUNK [None]
  - LABORATORY TEST ABNORMAL [None]
  - MIOSIS [None]
  - MULTIPLE DRUG OVERDOSE [None]
  - OBSESSIVE THOUGHTS [None]
  - PERSONALITY DISORDER [None]
  - POISONING [None]
  - PUPILLARY REFLEX IMPAIRED [None]
  - SMOKER [None]
